FAERS Safety Report 5851840-3 (Version None)
Quarter: 2008Q3

REPORT INFORMATION
  Report Type: 
  Country: None (occurrence: None)
  Receive Date: 20080819
  Receipt Date: 20080805
  Transmission Date: 20090109
  Serious: Yes (Disabling)
  Sender: FDA-Public Use
  Company Number: 1000000510

PATIENT
  Age: 75 Year
  Sex: Female
  Weight: 56 kg

DRUGS (6)
  1. ESCITALOPRAM [Suspect]
     Indication: DEPRESSION
     Dosage: 5 MG )5 MG, 1 IN 1 D), ORAL
     Route: 048
     Dates: start: 20080403, end: 20080418
  2. PLAVIX [Concomitant]
  3. LEXOMIL [Concomitant]
  4. ZOPICLONE [Concomitant]
  5. IDEOS [Concomitant]
  6. ACTONEL [Concomitant]

REACTIONS (6)
  - AGITATION [None]
  - ANXIETY [None]
  - HEADACHE [None]
  - MEMORY IMPAIRMENT [None]
  - PHOTOPHOBIA [None]
  - VISUAL IMPAIRMENT [None]
